FAERS Safety Report 4760168-4 (Version None)
Quarter: 2005Q3

REPORT INFORMATION
  Report Type: 
  Country: None (occurrence: None)
  Receive Date: 20050831
  Receipt Date: 20050831
  Transmission Date: 20060218
  Serious: Yes (Other)
  Sender: FDA-Public Use
  Company Number: None

PATIENT
  Age: 65 Year
  Sex: Male

DRUGS (1)
  1. TRIAZOLAM   0.25MG [Suspect]
     Indication: INSOMNIA
     Dosage: TAKE 1/2 TABLET AS NEEDED AS DIRECTED BY YOUR PHYSICIAN
     Dates: start: 20050601

REACTIONS (4)
  - DRUG INEFFECTIVE [None]
  - HEART RATE INCREASED [None]
  - INSOMNIA [None]
  - PHARMACEUTICAL PRODUCT COMPLAINT [None]
